FAERS Safety Report 24153224 (Version 2)
Quarter: 2024Q3

REPORT INFORMATION
  Report Type: Spontaneous
  Country: JP (occurrence: JP)
  Receive Date: 20240730
  Receipt Date: 20240906
  Transmission Date: 20241017
  Serious: Yes (Hospitalization, Other)
  Sender: OTSUKA
  Company Number: JP-OTSUKA-2024_018232

PATIENT
  Age: 10 Decade
  Sex: Male

DRUGS (1)
  1. SAMSCA [Suspect]
     Active Substance: TOLVAPTAN
     Indication: Cardiac failure
     Dosage: 15MG/DAY
     Route: 048

REACTIONS (3)
  - Biliary obstruction [Unknown]
  - Blood sodium decreased [Unknown]
  - Wrong technique in product usage process [Unknown]
